FAERS Safety Report 13371247 (Version 9)
Quarter: 2018Q1

REPORT INFORMATION
  Report Type: Report from Study
  Country: US (occurrence: US)
  Receive Date: 20170324
  Receipt Date: 20180228
  Transmission Date: 20180508
  Serious: Yes (Hospitalization)
  Sender: FDA-Public Use
  Company Number: US-ACTELION-A-US2016-133582

PATIENT
  Age: 69 Year
  Sex: Female
  Weight: 70.3 kg

DRUGS (7)
  1. VELETRI [Suspect]
     Active Substance: EPOPROSTENOL
     Dosage: 9.5 NG/KG, PER MIN
     Route: 042
     Dates: start: 20160314
  2. VELETRI [Suspect]
     Active Substance: EPOPROSTENOL
     Dosage: 14 NG/KG,PER MIN
     Route: 042
  3. VELETRI [Suspect]
     Active Substance: EPOPROSTENOL
     Dosage: 15 NG/KG, PER MIN
     Route: 042
  4. VELETRI [Suspect]
     Active Substance: EPOPROSTENOL
     Indication: PULMONARY HYPERTENSION
     Dosage: 12 NG/KG, PER MIN
     Route: 042
  5. ADCIRCA [Concomitant]
     Active Substance: TADALAFIL
  6. OXYGEN. [Concomitant]
     Active Substance: OXYGEN
     Dosage: 10 L/MIN, UNK
  7. VELETRI [Suspect]
     Active Substance: EPOPROSTENOL
     Dosage: 11.5 NG/KG/PER MIN
     Route: 042

REACTIONS (39)
  - Loss of personal independence in daily activities [Unknown]
  - Eye pain [Unknown]
  - Flushing [Unknown]
  - Ocular hyperaemia [Unknown]
  - Oedema peripheral [Unknown]
  - Weight increased [Unknown]
  - Dizziness [Unknown]
  - Walking distance test [Unknown]
  - Infection [Unknown]
  - Oedema [Unknown]
  - Dyspnoea [Unknown]
  - Condition aggravated [Unknown]
  - Catheter site erythema [Not Recovered/Not Resolved]
  - Dyspnoea exertional [Unknown]
  - Cellulitis [Unknown]
  - Pain in jaw [Unknown]
  - Jaw disorder [Unknown]
  - Decreased appetite [Unknown]
  - Vomiting [Unknown]
  - Catheter site pruritus [Unknown]
  - Presyncope [Unknown]
  - Purulent discharge [Unknown]
  - Diarrhoea [Recovering/Resolving]
  - Therapy non-responder [Unknown]
  - Weight decreased [Unknown]
  - Diuretic therapy [Unknown]
  - Acute respiratory failure [Unknown]
  - Headache [Unknown]
  - Hypotension [Unknown]
  - Clostridium difficile infection [Unknown]
  - Cardiac failure [Unknown]
  - Bacteraemia [Unknown]
  - Sepsis [Unknown]
  - Fluid retention [Unknown]
  - Dysentery [Unknown]
  - Catheter placement [Unknown]
  - Mastication disorder [Unknown]
  - Burning sensation [Unknown]
  - Toothache [Unknown]

NARRATIVE: CASE EVENT DATE: 20161031
